FAERS Safety Report 20581076 (Version 3)
Quarter: 2023Q2

REPORT INFORMATION
  Report Type: Spontaneous
  Country: US (occurrence: US)
  Receive Date: 20220311
  Receipt Date: 20230630
  Transmission Date: 20230721
  Serious: Yes (Life-Threatening, Hospitalization, Congenital Anomaly, Other)
  Sender: FDA-Public Use
  Company Number: US-MLMSERVICE-20220224-3393823-1

PATIENT
  Sex: Female
  Weight: 1.965 kg

DRUGS (2)
  1. METHOTREXATE [Suspect]
     Active Substance: METHOTREXATE
     Indication: Abortion induced
     Dosage: UNK
     Route: 064
  2. MISOPROSTOL [Suspect]
     Active Substance: MISOPROSTOL
     Indication: Abortion induced
     Dosage: 2 DOSAGE FORMTOTAL
     Route: 064

REACTIONS (16)
  - Craniosynostosis [Unknown]
  - Nail aplasia [Unknown]
  - Retrognathia [Unknown]
  - Microgenia [Unknown]
  - Adactyly [Unknown]
  - Phalangeal hypoplasia [Unknown]
  - Foetal methotrexate syndrome [Unknown]
  - Eyelid ptosis congenital [Unknown]
  - Gross motor delay [Unknown]
  - Abnormal palmar/plantar creases [Unknown]
  - Infantile haemangioma [Unknown]
  - Low set ears [Unknown]
  - Foetal growth restriction [Unknown]
  - Cerebral ventricle dilatation [Unknown]
  - Prominent epicanthal folds [Unknown]
  - Foetal exposure during pregnancy [Unknown]
